FAERS Safety Report 23213889 (Version 1)
Quarter: 2023Q4

REPORT INFORMATION
  Report Type: Spontaneous
  Country: SE (occurrence: SE)
  Receive Date: 20231121
  Receipt Date: 20231121
  Transmission Date: 20240109
  Serious: Yes (Other)
  Sender: FDA-Public Use
  Company Number: SE-TEVA-2023-SE-2947520

PATIENT
  Age: 76 Year
  Sex: Male

DRUGS (3)
  1. LENALIDOMIDE [Suspect]
     Active Substance: LENALIDOMIDE
     Indication: Follicular lymphoma stage II
     Dosage: DAILY FOR 3 WEEKS WITH A 1-WEEK PAUSE
     Route: 065
  2. RITUXIMAB [Suspect]
     Active Substance: RITUXIMAB
     Indication: Follicular lymphoma stage II
     Route: 065
     Dates: start: 202111
  3. EPCORITAMAB [Suspect]
     Active Substance: EPCORITAMAB
     Indication: COVID-19
     Route: 065

REACTIONS (1)
  - COVID-19 [Recovered/Resolved]
